FAERS Safety Report 7648615-1 (Version None)
Quarter: 2011Q3

REPORT INFORMATION
  Report Type: 
  Country: None (occurrence: None)
  Receive Date: 20110801
  Receipt Date: 20110718
  Transmission Date: 20111222
  Serious: Yes (Hospitalization)
  Sender: FDA-Public Use
  Company Number: PHHY2011MX65658

PATIENT
  Sex: Female

DRUGS (1)
  1. EXFORGE HCT [Suspect]
     Indication: HYPERTENSION
     Dosage: (VALS 320 MG/ AMLO 10 MG/ HYDR 25 MG) 1 DF, PER DAY
     Dates: start: 20110711

REACTIONS (2)
  - EMBOLISM [None]
  - HEMIPLEGIA [None]
